FAERS Safety Report 6856270-3 (Version None)
Quarter: 2010Q3

REPORT INFORMATION
  Report Type: 
  Country: None (occurrence: None)
  Receive Date: 20100719
  Receipt Date: 20100707
  Transmission Date: 20110219
  Serious: Yes (Other)
  Sender: FDA-Public Use
  Company Number: PHHY2010TW44721

PATIENT
  Age: 86 Year
  Sex: Female

DRUGS (1)
  1. ACLASTA [Suspect]
     Indication: OSTEOPOROSIS POSTMENOPAUSAL
     Dosage: 5 MG/100 ML
     Route: 042
     Dates: start: 20100615

REACTIONS (4)
  - BONE PAIN [None]
  - DYSSTASIA [None]
  - PAIN [None]
  - SPINAL CORD COMPRESSION [None]
